FAERS Safety Report 24318632 (Version 1)
Quarter: 2024Q3

REPORT INFORMATION
  Report Type: Report from Study
  Country: CA (occurrence: CA)
  Receive Date: 20240913
  Receipt Date: 20240913
  Transmission Date: 20241017
  Serious: Yes (Other)
  Sender: JOHNSON AND JOHNSON
  Company Number: CA-JNJFOC-20240918706

PATIENT
  Age: 16 Year
  Sex: Male

DRUGS (1)
  1. REMICADE [Suspect]
     Active Substance: INFLIXIMAB
     Indication: Crohn^s disease
     Dosage: RECEIVED 2 LOADING DOSES OF REMICADE AND AT INFUSION CLINIC FOR LOADING DOSE #3
     Route: 041
     Dates: start: 20240809

REACTIONS (3)
  - Presyncope [Recovered/Resolved]
  - Presyncope [Unknown]
  - Skin laceration [Unknown]

NARRATIVE: CASE EVENT DATE: 20240101
